FAERS Safety Report 9432698 (Version 2)
Quarter: 2013Q3

REPORT INFORMATION
  Report Type: Spontaneous
  Country: JP (occurrence: JP)
  Receive Date: 20130731
  Receipt Date: 20130809
  Transmission Date: 20140515
  Serious: Yes (Other)
  Sender: FDA-Public Use
  Company Number: JP-SANOFI-AVENTIS-2013SA076510

PATIENT
  Age: 25 Year
  Sex: Male

DRUGS (3)
  1. ZOLPIDEM [Suspect]
     Indication: DEPRESSION
     Route: 048
  2. ZOLPIDEM [Suspect]
     Indication: DEPRESSION
     Dosage: DOSE REDUCED
     Route: 048
     Dates: start: 201208
  3. ANTIDEPRESSANTS [Suspect]
     Indication: DEPRESSION
     Route: 048
     Dates: start: 2005

REACTIONS (2)
  - Eye pain [Recovered/Resolved]
  - Off label use [Unknown]
